FAERS Safety Report 21842413 (Version 1)
Quarter: 2023Q1

REPORT INFORMATION
  Report Type: Spontaneous
  Country: US (occurrence: US)
  Receive Date: 20230110
  Receipt Date: 20230110
  Transmission Date: 20230418
  Serious: No
  Sender: FDA-Public Use
  Company Number: US-CHIESI-2022CHF05569

PATIENT
  Sex: Female

DRUGS (2)
  1. ZYFLO [Suspect]
     Active Substance: ZILEUTON
     Indication: Urticaria
     Dosage: TAKE 1 TABLET BY MOUTH 4 TIMES DAILY
     Route: 048
  2. XOLAIR [Concomitant]
     Active Substance: OMALIZUMAB
     Indication: Product used for unknown indication
     Dosage: UNK
     Route: 065

REACTIONS (2)
  - Product dose omission issue [Unknown]
  - Off label use [Unknown]
